FAERS Safety Report 13073493 (Version 3)
Quarter: 2018Q1

REPORT INFORMATION
  Report Type: Spontaneous
  Country: JP (occurrence: JP)
  Receive Date: 20161229
  Receipt Date: 20180116
  Transmission Date: 20180508
  Serious: Yes (Other)
  Sender: FDA-Public Use
  Company Number: JP-TEVA-724129ISR

PATIENT
  Sex: Female

DRUGS (2)
  1. DISOPYRAMIDE [Suspect]
     Active Substance: DISOPYRAMIDE
     Indication: SUICIDE ATTEMPT
     Dosage: 4950 MG
     Route: 065
  2. FLUNITRAZEPAM [Suspect]
     Active Substance: FLUNITRAZEPAM
     Indication: SUICIDE ATTEMPT
     Dosage: 12 MG
     Route: 065

REACTIONS (15)
  - Ventricular tachycardia [Recovered/Resolved]
  - Agitation [Recovered/Resolved]
  - Cardiac arrest [Recovered/Resolved]
  - Platelet count decreased [Recovered/Resolved]
  - Renal disorder [Recovered/Resolved]
  - Anaemia [Recovered/Resolved]
  - Toxicity to various agents [Recovered/Resolved]
  - Intentional overdose [Recovered/Resolved]
  - Lactic acidosis [Recovered/Resolved]
  - Cardio-respiratory arrest [Recovered/Resolved]
  - Conduction disorder [Recovered/Resolved]
  - Suicide attempt [Recovered/Resolved]
  - Altered state of consciousness [Recovered/Resolved]
  - Electrocardiogram QRS complex prolonged [Recovered/Resolved]
  - Cardiogenic shock [Recovered/Resolved]
